FAERS Safety Report 11550853 (Version 1)
Quarter: 2015Q3

REPORT INFORMATION
  Report Type: Spontaneous
  Country: US (occurrence: US)
  Receive Date: 20150903
  Receipt Date: 20150903
  Transmission Date: 20151125
  Serious: No
  Sender: FDA-Public Use
  Company Number: US-ELI_LILLY_AND_COMPANY-US201211003393

PATIENT
  Age: 67 Year
  Sex: Female

DRUGS (2)
  1. HUMALOG MIX75/25 [Suspect]
     Active Substance: INSULIN LISPRO
     Dosage: 40 U, BID
  2. HUMALOG MIX75/25 [Suspect]
     Active Substance: INSULIN LISPRO
     Indication: TYPE 2 DIABETES MELLITUS
     Dosage: 40 U, BID

REACTIONS (7)
  - Incorrect product storage [Unknown]
  - Underdose [Unknown]
  - Gastroenteritis viral [Unknown]
  - Vomiting [Unknown]
  - Injection site bruising [Unknown]
  - Injury associated with device [Unknown]
  - Malaise [Unknown]

NARRATIVE: CASE EVENT DATE: 20121108
